FAERS Safety Report 5262824-0 (Version None)
Quarter: 2007Q1

REPORT INFORMATION
  Report Type: 
  Country: None (occurrence: None)
  Receive Date: 20070312
  Receipt Date: 20070228
  Transmission Date: 20070707
  Serious: Yes (Other)
  Sender: FDA-Public Use
  Company Number: HQWYE452102MAR07

PATIENT
  Sex: Female
  Weight: 57.2 kg

DRUGS (2)
  1. EFFEXOR XR [Suspect]
     Indication: DEPRESSION
     Route: 048
     Dates: start: 20050101
  2. EFFEXOR XR [Suspect]
     Indication: ANXIETY
     Dosage: WEANING OFF
     Route: 048

REACTIONS (8)
  - CRYING [None]
  - DRUG WITHDRAWAL SYNDROME [None]
  - NAUSEA [None]
  - PARAESTHESIA [None]
  - SUICIDAL IDEATION [None]
  - TREMOR [None]
  - VISION BLURRED [None]
  - VOMITING [None]
